FAERS Safety Report 7983218 (Version 2)
Quarter: 2014Q1

REPORT INFORMATION
  Report Type: Spontaneous
  Country: CA (occurrence: CA)
  Receive Date: 20110609
  Receipt Date: 20140204
  Transmission Date: 20141002
  Serious: Yes (Other)
  Sender: FDA-Public Use
  Company Number: CA-RANBAXY-2011US-44978

PATIENT
  Age: 16 Year
  Sex: Female
  Weight: 63.8 kg

DRUGS (4)
  1. ENALAPRIL [Suspect]
     Indication: ALPORT^S SYNDROME
     Dosage: 0.8 MG/KG/DAY
     Route: 065
  2. LOSARTAN/HYDROCHLOROTHIAZIDE [Suspect]
     Indication: ALPORT^S SYNDROME
     Dosage: 0.4/ 0.8 MG/KG/DAY
     Route: 065
  3. ALISKIREN [Suspect]
     Indication: ALPORT^S SYNDROME
     Dosage: 150 MG; DAILY
     Route: 065
  4. SIMVASTATIN [Concomitant]
     Indication: PRODUCT USED FOR UNKNOWN INDICATION
     Route: 065

REACTIONS (2)
  - Hyperkalaemia [Unknown]
  - Renal impairment [Not Recovered/Not Resolved]
